FAERS Safety Report 15991157 (Version 5)
Quarter: 2019Q3

REPORT INFORMATION
  Report Type: Report from Study
  Country: AR (occurrence: AR)
  Receive Date: 20190221
  Receipt Date: 20190823
  Transmission Date: 20191004
  Serious: Yes (Other)
  Sender: FDA-Public Use
  Company Number: AR-ACTELION-A-CH2019-186389

PATIENT
  Age: 12 Year
  Sex: Female
  Weight: 27 kg

DRUGS (1)
  1. MIGLUSTAT CAPSULE 100 MG NPC ROW [Suspect]
     Active Substance: MIGLUSTAT
     Indication: NIEMANN-PICK DISEASE
     Dosage: 300 MG, QD
     Route: 048
     Dates: start: 20171001

REACTIONS (7)
  - Pain [Recovering/Resolving]
  - Joint dislocation [Recovering/Resolving]
  - Diarrhoea [Recovering/Resolving]
  - Bladder catheter removal [Recovering/Resolving]
  - Abdominal pain [Not Recovered/Not Resolved]
  - Expired product administered [Unknown]
  - Hypertonia [Recovering/Resolving]

NARRATIVE: CASE EVENT DATE: 201903
